FAERS Safety Report 7649858-3 (Version None)
Quarter: 2011Q3

REPORT INFORMATION
  Report Type: 
  Country: None (occurrence: None)
  Receive Date: 20110802
  Receipt Date: 20110726
  Transmission Date: 20111222
  Serious: Yes (Death)
  Sender: FDA-Public Use
  Company Number: US-CELGENEUS-163-21880-11073057

PATIENT
  Age: 49 Year
  Sex: Male

DRUGS (12)
  1. HALOPERIDOL [Concomitant]
     Route: 065
  2. ONDANSETRON [Concomitant]
     Route: 065
  3. OXYCODONE HCL [Concomitant]
     Route: 065
  4. DEXAMETHASONE [Suspect]
     Indication: MULTIPLE MYELOMA
     Route: 065
     Dates: start: 20100501
  5. THALIDOMIDE [Suspect]
     Indication: MULTIPLE MYELOMA
     Route: 065
     Dates: start: 20100501
  6. MORPHINE [Concomitant]
     Route: 065
  7. REVLIMID [Suspect]
     Indication: MULTIPLE MYELOMA
     Dosage: 10 MILLIGRAM
     Route: 048
     Dates: start: 20090301, end: 20090801
  8. MELPHALAN HYDROCHLORIDE [Suspect]
     Indication: MULTIPLE MYELOMA
     Route: 065
     Dates: start: 20110301
  9. FENTANYL [Concomitant]
     Route: 065
  10. REVLIMID [Suspect]
     Dosage: 25 MILLIGRAM
     Route: 048
     Dates: start: 20100501, end: 20110301
  11. PREDNISONE TAB [Suspect]
     Indication: MULTIPLE MYELOMA
     Route: 065
     Dates: start: 20110301
  12. VELCADE [Suspect]
     Indication: MULTIPLE MYELOMA
     Route: 065
     Dates: start: 20110301

REACTIONS (3)
  - MULTIPLE MYELOMA [None]
  - PNEUMONIA [None]
  - SEPSIS [None]
